FAERS Safety Report 12937259 (Version 3)
Quarter: 2016Q4

REPORT INFORMATION
  Report Type: Spontaneous
  Country: US (occurrence: US)
  Receive Date: 20161114
  Receipt Date: 20161213
  Transmission Date: 20170207
  Serious: Yes (Other)
  Sender: FDA-Public Use
  Company Number: US-PFIZER INC-2016523031

PATIENT
  Age: 24 Year
  Sex: Female
  Weight: 65 kg

DRUGS (2)
  1. DEPO-PROVERA [Suspect]
     Active Substance: MEDROXYPROGESTERONE ACETATE
     Dosage: 150 MG, UNK
     Route: 030
  2. MEDROXYPROGESTERONE ACETATE. [Suspect]
     Active Substance: MEDROXYPROGESTERONE ACETATE
     Indication: CONTRACEPTION
     Dosage: 150 MG, EVERY 3 MONTHS (EVERY 12 WEEKS OR EVERY 84 DAYS)
     Route: 030
     Dates: start: 20161107, end: 20161108

REACTIONS (12)
  - Anaphylactic reaction [Unknown]
  - Tremor [Recovered/Resolved]
  - Hypersensitivity [Not Recovered/Not Resolved]
  - Chest pain [Recovered/Resolved]
  - Pruritus [Not Recovered/Not Resolved]
  - Nasal oedema [Recovered/Resolved]
  - Rash [Not Recovered/Not Resolved]
  - Dyspnoea [Recovered/Resolved]
  - Erythema [Unknown]
  - Urticaria [Recovering/Resolving]
  - Peripheral swelling [Not Recovered/Not Resolved]
  - Eye swelling [Recovered/Resolved]

NARRATIVE: CASE EVENT DATE: 20161107
